FAERS Safety Report 4651465-1 (Version None)
Quarter: 2005Q2

REPORT INFORMATION
  Report Type: 
  Country: None (occurrence: None)
  Receive Date: 20050502
  Receipt Date: 20050420
  Transmission Date: 20051028
  Serious: Yes (Hospitalization)
  Sender: FDA-Public Use
  Company Number: 2005062880

PATIENT
  Age: 54 Year
  Sex: Female

DRUGS (4)
  1. BEXTRA [Suspect]
     Indication: BACK PAIN
     Dosage: (1 IN 1 D)
     Dates: start: 20030101, end: 20050401
  2. SERETIDE MITE (FLUTICASONE PROPIONATE, SALMETEROL XINAFOATE) [Suspect]
     Indication: WHEEZING
  3. CYCLOBENZAPRINE HYDROCHLORIDE [Concomitant]
  4. VICODIN [Concomitant]

REACTIONS (9)
  - CARDIAC FLUTTER [None]
  - CHEST DISCOMFORT [None]
  - CHEST PAIN [None]
  - DRUG INTERACTION [None]
  - HEART RATE INCREASED [None]
  - RASH ERYTHEMATOUS [None]
  - RASH PRURITIC [None]
  - SUFFOCATION FEELING [None]
  - WHEEZING [None]
